FAERS Safety Report 22262405 (Version 3)
Quarter: 2023Q2

REPORT INFORMATION
  Report Type: Report from Study
  Country: US (occurrence: US)
  Receive Date: 20230428
  Receipt Date: 20230622
  Transmission Date: 20230722
  Serious: Yes (Hospitalization)
  Sender: FDA-Public Use
  Company Number: US-Merck Healthcare KGaA-9398334

PATIENT
  Sex: Female

DRUGS (1)
  1. REBIF [Suspect]
     Active Substance: INTERFERON BETA-1A
     Indication: Multiple sclerosis
     Route: 058
     Dates: start: 20210623

REACTIONS (5)
  - Nephrolithiasis [Recovering/Resolving]
  - Renal cyst [Unknown]
  - Infection [Unknown]
  - Hypotension [Unknown]
  - Blood glucose abnormal [Unknown]
